FAERS Safety Report 4948357-7 (Version None)
Quarter: 2006Q1

REPORT INFORMATION
  Report Type: 
  Country: None (occurrence: None)
  Receive Date: 20060320
  Receipt Date: 20060309
  Transmission Date: 20060701
  Serious: Yes (Hospitalization, Other)
  Sender: FDA-Public Use
  Company Number: GB-BRISTOL-MYERS SQUIBB COMPANY-13309901

PATIENT
  Age: 48 Year
  Sex: Male

DRUGS (1)
  1. MODECATE [Suspect]
     Indication: BIPOLAR I DISORDER
     Dates: start: 19910101

REACTIONS (2)
  - MULTIPLE FRACTURES [None]
  - SUICIDE ATTEMPT [None]
